FAERS Safety Report 7067300-0 (Version None)
Quarter: 2010Q4

REPORT INFORMATION
  Report Type: 
  Country: None (occurrence: None)
  Receive Date: 20101022
  Receipt Date: 20101022
  Transmission Date: 20110411
  Serious: Yes (Hospitalization)
  Sender: FDA-Public Use
  Company Number: None

PATIENT
  Age: 47 Year
  Sex: Female
  Weight: 104.3273 kg

DRUGS (2)
  1. FOSAMAX [Suspect]
     Indication: OSTEOPENIA
     Dosage: DAILY PO  YEARS THEN CHG TO ACTONEL
     Route: 048
     Dates: start: 20000105, end: 20090806
  2. ACTONEL [Suspect]
     Indication: OSTEOPENIA
     Dosage: DAILY PO
     Route: 048
     Dates: start: 20000105, end: 20090806

REACTIONS (7)
  - BLOOD PARATHYROID HORMONE DECREASED [None]
  - DEVICE BREAKAGE [None]
  - FALL [None]
  - FEMUR FRACTURE [None]
  - GROIN PAIN [None]
  - PAIN IN EXTREMITY [None]
  - VITAMIN D DEFICIENCY [None]
